FAERS Safety Report 4318395-6 (Version None)
Quarter: 2004Q1

REPORT INFORMATION
  Report Type: 
  Country: None (occurrence: None)
  Receive Date: 20040315
  Receipt Date: 20040301
  Transmission Date: 20041129
  Serious: Yes (Death, Life-Threatening, Hospitalization, Other)
  Sender: FDA-Public Use
  Company Number: NSADSS2003007326

PATIENT
  Age: 80 Year
  Sex: Female

DRUGS (13)
  1. INFLIXIMAB, RECOMBINANT [Suspect]
     Indication: RHEUMATOID ARTHRITIS
     Dosage: 3 MG/KG, 1 IN 1 AS NECESSARY, INTRAVENOUS DRIP
     Route: 041
     Dates: start: 20020328, end: 20020328
  2. INFLIXIMAB, RECOMBINANT [Suspect]
     Indication: RHEUMATOID ARTHRITIS
     Dosage: 3 MG/KG, 1 IN 1 AS NECESSARY, INTRAVENOUS DRIP
     Route: 041
     Dates: start: 20020411, end: 20020411
  3. INFLIXIMAB, RECOMBINANT [Suspect]
     Indication: RHEUMATOID ARTHRITIS
     Dosage: 3 MG/KG, 1 IN 1 AS NECESSARY, INTRAVENOUS DRIP
     Route: 041
     Dates: start: 20020509, end: 20020509
  4. INFLIXIMAB, RECOMBINANT [Suspect]
     Indication: RHEUMATOID ARTHRITIS
     Dosage: 3 MG/KG, 1 IN 1 AS NECESSARY, INTRAVENOUS DRIP
     Route: 041
     Dates: start: 20020704, end: 20020704
  5. INFLIXIMAB, RECOMBINANT [Suspect]
     Indication: RHEUMATOID ARTHRITIS
     Dosage: 3 MG/KG, 1 IN 1 AS NECESSARY, INTRAVENOUS DRIP
     Route: 041
     Dates: start: 20020829, end: 20020829
  6. INFLIXIMAB, RECOMBINANT [Suspect]
     Indication: RHEUMATOID ARTHRITIS
     Dosage: 3 MG/KG, 1 IN 1 AS NECESSARY, INTRAVENOUS DRIP
     Route: 041
     Dates: start: 20021001, end: 20021001
  7. INFLIXIMAB, RECOMBINANT [Suspect]
     Indication: RHEUMATOID ARTHRITIS
     Dosage: 3 MG/KG, 1 IN 1 AS NECESSARY, INTRAVENOUS DRIP
     Route: 041
     Dates: start: 20011025, end: 20021025
  8. INFLIXIMAB, RECOMBINANT [Suspect]
     Indication: RHEUMATOID ARTHRITIS
     Dosage: 3 MG/KG, 1 IN 1 AS NECESSARY, INTRAVENOUS DRIP
     Route: 041
     Dates: start: 20021219, end: 20021219
  9. METHOTREXATE [Concomitant]
  10. CALTRATE (CALCIUM CARBONATE) [Concomitant]
  11. FEFOL (FEFOL) [Concomitant]
  12. FOLIC ACID [Concomitant]
  13. DIGOXIN [Concomitant]

REACTIONS (10)
  - ADENOCARCINOMA [None]
  - CHEST PAIN [None]
  - COLON CANCER METASTATIC [None]
  - FATIGUE [None]
  - HEPATOMEGALY [None]
  - METASTASES TO LIVER [None]
  - NEEDLE BIOPSY SITE UNSPECIFIED ABNORMAL [None]
  - RHEUMATOID ARTHRITIS [None]
  - SKIN LACERATION [None]
  - WEIGHT DECREASED [None]
